FAERS Safety Report 8246220-X (Version None)
Quarter: 2012Q1

REPORT INFORMATION
  Report Type: 
  Country: None (occurrence: None)
  Receive Date: 20120330
  Receipt Date: 20120322
  Transmission Date: 20120608
  Serious: Yes (Hospitalization, Other)
  Sender: FDA-Public Use
  Company Number: US-BAYER-2011-091719

PATIENT
  Age: 34 Year
  Sex: Female
  Weight: 91 kg

DRUGS (8)
  1. PROPRANOLOL [Concomitant]
     Dosage: 40 MG, QD
     Route: 048
  2. MEDROL [Concomitant]
     Dosage: 4 MG AS DIRECTED
     Route: 048
     Dates: start: 20120131
  3. TRI-PREVIFEM [Concomitant]
     Dosage: UNK
     Dates: start: 20110101
  4. EXCEDRIN (MIGRAINE) [Concomitant]
     Dosage: 2 TABS EVERY 4-6 HRS PRN
     Route: 048
  5. YAZ [Suspect]
     Indication: CONTRACEPTION
     Dosage: UNK
     Route: 048
     Dates: start: 20100101, end: 20110101
  6. FLONASE [Concomitant]
     Dosage: 2 SPRAYS
     Route: 045
  7. BACTRIM DS [Concomitant]
     Dosage: UNK UNK, BID
     Route: 048
     Dates: start: 20110127
  8. PERCOCET [Concomitant]
     Dosage: 7.5 MG EVERY 4 HOURS PRN
     Route: 048

REACTIONS (10)
  - ANHEDONIA [None]
  - EMOTIONAL DISTRESS [None]
  - HEADACHE [None]
  - INJURY [None]
  - INTRACRANIAL VENOUS SINUS THROMBOSIS [None]
  - GENERAL PHYSICAL HEALTH DETERIORATION [None]
  - PAIN [None]
  - CEREBRAL VENOUS THROMBOSIS [None]
  - ANXIETY [None]
  - BLINDNESS TRANSIENT [None]
